FAERS Safety Report 4554271-1 (Version None)
Quarter: 2005Q1

REPORT INFORMATION
  Report Type: 
  Country: None (occurrence: None)
  Receive Date: 20050118
  Receipt Date: 20000323
  Transmission Date: 20050727
  Serious: Yes (Hospitalization, Disabling)
  Sender: FDA-Public Use
  Company Number: US-GLAXOSMITHKLINE-A0323541A

PATIENT
  Age: 45 Year
  Sex: Female

DRUGS (4)
  1. PAXIL [Suspect]
     Indication: ANXIETY
     Dosage: 10MG PER DAY
     Route: 048
  2. PAXIL [Suspect]
     Indication: PREMENSTRUAL SYNDROME
     Dosage: 20MG PER DAY
     Route: 048
     Dates: start: 20000401
  3. XANAX [Concomitant]
  4. VITAMIN [Concomitant]

REACTIONS (22)
  - AFFECTIVE DISORDER [None]
  - ALOPECIA [None]
  - ANXIETY [None]
  - ASTHENIA [None]
  - CRYING [None]
  - DIARRHOEA [None]
  - DISABILITY [None]
  - DIZZINESS [None]
  - DRUG DEPENDENCE [None]
  - DRUG INEFFECTIVE [None]
  - DRUG WITHDRAWAL SYNDROME [None]
  - FATIGUE [None]
  - IMPAIRED DRIVING ABILITY [None]
  - IMPAIRED WORK ABILITY [None]
  - INSOMNIA [None]
  - MENTAL DISORDER [None]
  - NAUSEA [None]
  - PANIC ATTACK [None]
  - PREMENSTRUAL SYNDROME [None]
  - SUICIDAL IDEATION [None]
  - WEIGHT DECREASED [None]
  - WEIGHT INCREASED [None]
